FAERS Safety Report 16237037 (Version 1)
Quarter: 2019Q2

REPORT INFORMATION
  Report Type: Spontaneous
  Country: PL (occurrence: PL)
  Receive Date: 20190425
  Receipt Date: 20190425
  Transmission Date: 20190711
  Serious: Yes (Life-Threatening)
  Sender: FDA-Public Use
  Company Number: PL-ACCORD-123862

PATIENT
  Age: 56 Year
  Sex: Male
  Weight: 56 kg

DRUGS (3)
  1. PABI DEXAMETHASON [Concomitant]
     Indication: GASTRIC CANCER
     Route: 048
     Dates: start: 20181228, end: 20181228
  2. DOCETAXEL. [Concomitant]
     Active Substance: DOCETAXEL
     Indication: GASTRIC CANCER
     Route: 042
     Dates: start: 20181228, end: 20181228
  3. OXALIPLATIN. [Suspect]
     Active Substance: OXALIPLATIN
     Indication: GASTRIC CANCER
     Dosage: SIXTH CYCLE OF CHEMOTHERAPY
     Route: 042
     Dates: start: 20181228, end: 20181228

REACTIONS (4)
  - Blood pressure decreased [Recovered/Resolved]
  - Dyspnoea [Recovered/Resolved]
  - Anaphylactic shock [Recovered/Resolved]
  - Respiratory disorder [Recovered/Resolved]

NARRATIVE: CASE EVENT DATE: 20181228
